FAERS Safety Report 7358870-3 (Version None)
Quarter: 2011Q1

REPORT INFORMATION
  Report Type: 
  Country: None (occurrence: None)
  Receive Date: 20110317
  Receipt Date: 20110308
  Transmission Date: 20110831
  Serious: Yes (Other)
  Sender: FDA-Public Use
  Company Number: B0706475A

PATIENT
  Sex: Female

DRUGS (3)
  1. BISOPROLOL FUMARATE [Concomitant]
     Dosage: 5MG PER DAY
     Route: 048
  2. WARFARIN SODIUM [Concomitant]
     Route: 048
  3. PROPAFENONE HYDROCHLORIDE [Suspect]
     Indication: ARRHYTHMIA
     Dosage: 450MG PER DAY
     Route: 048
     Dates: start: 20090901

REACTIONS (2)
  - PYREXIA [None]
  - URINARY TRACT INFECTION [None]
